FAERS Safety Report 20813634 (Version 15)
Quarter: 2024Q2

REPORT INFORMATION
  Report Type: Other
  Country: DE (occurrence: None)
  Receive Date: 20220511
  Receipt Date: 20240425
  Transmission Date: 20240716
  Serious: Yes (Hospitalization, Other)
  Sender: FDA-Public Use
  Company Number: DE-ROCHE-2737956

PATIENT
  Age: 29 Year
  Sex: Female

DRUGS (5)
  1. OCREVUS [Suspect]
     Active Substance: OCRELIZUMAB
     Indication: Relapsing-remitting multiple sclerosis
     Dosage: THEN 600 MG, ONCE IN 176 DAYS
     Route: 042
     Dates: start: 20200901
  2. OCREVUS [Suspect]
     Active Substance: OCRELIZUMAB
     Route: 042
     Dates: start: 20200901
  3. OCREVUS [Suspect]
     Active Substance: OCRELIZUMAB
     Route: 042
     Dates: start: 20200901
  4. LEVOTHYROXINE [Concomitant]
     Active Substance: LEVOTHYROXINE\LEVOTHYROXINE SODIUM
  5. CHOLECALCIFEROL [Concomitant]
     Active Substance: CHOLECALCIFEROL
     Dosage: CURRENTLY SUSPENDED UNTIL AUTUMN 2023

REACTIONS (29)
  - Abnormal uterine bleeding [Recovered/Resolved]
  - Nephrolithiasis [Recovered/Resolved]
  - Brain neoplasm [Not Recovered/Not Resolved]
  - Fatigue [Not Recovered/Not Resolved]
  - Uhthoff^s phenomenon [Recovered/Resolved]
  - Visual impairment [Recovering/Resolving]
  - Paraesthesia [Recovered/Resolved]
  - Disturbance in attention [Recovering/Resolving]
  - Balance disorder [Not Recovered/Not Resolved]
  - Vaginal infection [Recovered/Resolved]
  - Galactorrhoea [Not Recovered/Not Resolved]
  - Oropharyngeal pain [Recovered/Resolved]
  - Depressed mood [Not Recovered/Not Resolved]
  - Nasopharyngitis [Recovered/Resolved]
  - COVID-19 [Recovered/Resolved]
  - Cough [Recovered/Resolved]
  - Arthralgia [Recovered/Resolved]
  - Fall [Unknown]
  - Influenza like illness [Recovered/Resolved]
  - Dysphonia [Recovered/Resolved]
  - Hydronephrosis [Recovering/Resolving]
  - Haemangioma of liver [Unknown]
  - Central nervous system lesion [Not Recovered/Not Resolved]
  - Nausea [Recovered/Resolved]
  - Vomiting [Recovered/Resolved]
  - Diarrhoea [Recovered/Resolved]
  - Noninfective gingivitis [Recovering/Resolving]
  - Trichorrhexis [Recovering/Resolving]
  - External ear inflammation [Recovered/Resolved]

NARRATIVE: CASE EVENT DATE: 20201101
